FAERS Safety Report 9253762 (Version 1)
Quarter: 2013Q2

REPORT INFORMATION
  Report Type: Spontaneous
  Country: US (occurrence: None)
  Receive Date: 20130422
  Receipt Date: 20130422
  Transmission Date: 20140414
  Serious: Yes (Death)
  Sender: FDA-Public Use
  Company Number: None

PATIENT
  Age: 56 Year
  Sex: Male

DRUGS (6)
  1. ZELBORAF [Suspect]
     Indication: MALIGNANT MELANOMA
     Route: 048
     Dates: start: 20120707, end: 20130418
  2. APAP [Concomitant]
  3. TRAMADOL [Concomitant]
  4. NORCO [Concomitant]
  5. LORAZEPAM [Concomitant]
  6. FENTANYL [Concomitant]

REACTIONS (2)
  - Metastatic neoplasm [None]
  - Metastases to central nervous system [None]
